FAERS Safety Report 9055180 (Version 1)
Quarter: 2013Q1

REPORT INFORMATION
  Report Type: Spontaneous
  Country: US (occurrence: US)
  Receive Date: 20130206
  Receipt Date: 20130206
  Transmission Date: 20140127
  Serious: Yes (Other)
  Sender: FDA-Public Use
  Company Number: US-BAYER-2013-013557

PATIENT
  Sex: Female

DRUGS (1)
  1. ALKA-SELTZER PLUS FLU FORMULA [Suspect]
     Dosage: 1 DF, UNK
     Route: 048
     Dates: start: 20130118, end: 20130119

REACTIONS (3)
  - Hallucination, visual [Recovered/Resolved]
  - Hallucination, auditory [Recovered/Resolved]
  - Nausea [Recovered/Resolved]
